FAERS Safety Report 9928594 (Version 2)
Quarter: 2014Q1

REPORT INFORMATION
  Report Type: Spontaneous
  Country: JP (occurrence: JP)
  Receive Date: 20140227
  Receipt Date: 20140227
  Transmission Date: 20141002
  Serious: Yes (Hospitalization)
  Sender: FDA-Public Use
  Company Number: JP-ELI_LILLY_AND_COMPANY-JP201401007753

PATIENT
  Age: 55 Year
  Sex: Male

DRUGS (5)
  1. ZYPREXA [Suspect]
     Indication: BIPOLAR DISORDER
     Dosage: 5 MG, UNK
     Route: 048
  2. ZYPREXA [Suspect]
     Dosage: 10 MG, UNK
     Route: 048
  3. ZYPREXA [Suspect]
     Dosage: 20 MG, UNK
     Route: 048
  4. SERENACE [Suspect]
     Indication: BIPOLAR DISORDER
     Dosage: 20 MG, UNK
     Route: 042
  5. LITHIUM [Concomitant]
     Indication: BIPOLAR DISORDER
     Route: 065

REACTIONS (2)
  - Mania [Unknown]
  - Neuroleptic malignant syndrome [Recovering/Resolving]
